FAERS Safety Report 17888170 (Version 1)
Quarter: 2020Q2

REPORT INFORMATION
  Report Type: Spontaneous
  Country: PT (occurrence: PT)
  Receive Date: 20200612
  Receipt Date: 20200612
  Transmission Date: 20200714
  Serious: Yes (Hospitalization)
  Sender: FDA-Public Use
  Company Number: PT-LEADINGPHARMA-PT-2020LEALIT00091

PATIENT
  Age: 15 Year
  Sex: Male

DRUGS (16)
  1. LORAZEPAM TABLETS USP [Suspect]
     Active Substance: LORAZEPAM
     Indication: TOURETTE^S DISORDER
     Route: 065
  2. CLONIDINE. [Suspect]
     Active Substance: CLONIDINE
     Indication: TOURETTE^S DISORDER
     Dosage: 112.5 MICROGRAM
     Route: 065
  3. DIAZEPAM. [Suspect]
     Active Substance: DIAZEPAM
     Indication: TOURETTE^S DISORDER
     Route: 065
  4. SERTRALINE [Suspect]
     Active Substance: SERTRALINE HYDROCHLORIDE
     Indication: TOURETTE^S DISORDER
     Route: 065
  5. LORAZEPAM TABLETS USP [Suspect]
     Active Substance: LORAZEPAM
     Indication: OBSESSIVE-COMPULSIVE DISORDER
  6. ARIPIPRAZOLE. [Suspect]
     Active Substance: ARIPIPRAZOLE
     Indication: TOURETTE^S DISORDER
     Route: 065
  7. ARIPIPRAZOLE. [Suspect]
     Active Substance: ARIPIPRAZOLE
     Indication: OBSESSIVE-COMPULSIVE DISORDER
  8. TIAPRIDE [Suspect]
     Active Substance: TIAPRIDE
     Indication: TOURETTE^S DISORDER
     Route: 065
  9. DIAZEPAM. [Suspect]
     Active Substance: DIAZEPAM
     Indication: OBSESSIVE-COMPULSIVE DISORDER
  10. MIDAZOLAM. [Suspect]
     Active Substance: MIDAZOLAM
     Indication: TOURETTE^S DISORDER
     Route: 040
  11. TIAPRIDE [Suspect]
     Active Substance: TIAPRIDE
     Indication: OBSESSIVE-COMPULSIVE DISORDER
  12. TETRABENAZINE. [Suspect]
     Active Substance: TETRABENAZINE
     Indication: TOURETTE^S DISORDER
     Route: 065
  13. TETRABENAZINE. [Suspect]
     Active Substance: TETRABENAZINE
     Indication: OBSESSIVE-COMPULSIVE DISORDER
  14. SERTRALINE [Suspect]
     Active Substance: SERTRALINE HYDROCHLORIDE
     Indication: OBSESSIVE-COMPULSIVE DISORDER
  15. MIDAZOLAM. [Suspect]
     Active Substance: MIDAZOLAM
     Indication: OBSESSIVE-COMPULSIVE DISORDER
  16. CLONIDINE. [Suspect]
     Active Substance: CLONIDINE
     Indication: OBSESSIVE-COMPULSIVE DISORDER

REACTIONS (6)
  - Parkinsonism [Unknown]
  - Neuroleptic malignant syndrome [Unknown]
  - Leukocytosis [Unknown]
  - Catatonia [Unknown]
  - Neutrophilia [Unknown]
  - Product use in unapproved indication [Unknown]
